FAERS Safety Report 8576953-7 (Version None)
Quarter: 2012Q3

REPORT INFORMATION
  Report Type: 
  Country: None (occurrence: None)
  Receive Date: 20120807
  Receipt Date: 20120803
  Transmission Date: 20120928
  Serious: Yes (Other)
  Sender: FDA-Public Use
  Company Number: US-ROCHE-769919

PATIENT
  Sex: Female
  Weight: 65.8 kg

DRUGS (5)
  1. ACCUTANE [Suspect]
     Dosage: IN DIVIDED DOSE
     Route: 048
  2. ACCUTANE [Suspect]
     Dosage: IN DIVIDED DOSE
     Route: 048
  3. ACCUTANE [Suspect]
     Indication: ACNE
     Route: 048
     Dates: start: 19991217, end: 20000301
  4. ACCUTANE [Suspect]
     Dosage: IN DIVIDED DOSE
     Route: 048
  5. ACCUTANE [Suspect]
     Dosage: IN DIVIDED DOSE
     Route: 048

REACTIONS (8)
  - DERMATITIS [None]
  - ANXIETY [None]
  - ACNE [None]
  - PROTEINURIA [None]
  - PROCTITIS ULCERATIVE [None]
  - HEADACHE [None]
  - INFLAMMATORY BOWEL DISEASE [None]
  - BLOOD TRIGLYCERIDES INCREASED [None]
